FAERS Safety Report 6057561-9 (Version None)
Quarter: 2009Q1

REPORT INFORMATION
  Report Type: 
  Country: None (occurrence: None)
  Receive Date: 20090129
  Receipt Date: 20090127
  Transmission Date: 20090719
  Serious: Yes (Death)
  Sender: FDA-Public Use
  Company Number: IN-ELI_LILLY_AND_COMPANY-IN200901004553

PATIENT

DRUGS (1)
  1. GEMCITE [Suspect]
     Dosage: UNK, UNKNOWN
     Route: 042

REACTIONS (1)
  - DEATH [None]
